FAERS Safety Report 9802689 (Version 1)
Quarter: 2014Q1

REPORT INFORMATION
  Report Type: Spontaneous
  Country: US (occurrence: US)
  Receive Date: 20140108
  Receipt Date: 20140108
  Transmission Date: 20141002
  Serious: No
  Sender: FDA-Public Use
  Company Number: US-BIOGENIDEC-2014BI001467

PATIENT
  Sex: Female

DRUGS (4)
  1. AVONEX [Suspect]
     Indication: MULTIPLE SCLEROSIS
     Route: 030
     Dates: start: 20130305
  2. ASPIRIN [Concomitant]
  3. BACLOFEN [Concomitant]
  4. SIMVASTATIN [Concomitant]

REACTIONS (1)
  - Burning sensation [Unknown]
